FAERS Safety Report 9209674 (Version 4)
Quarter: 2014Q1

REPORT INFORMATION
  Report Type: Spontaneous
  Country: IE (occurrence: IE)
  Receive Date: 20130404
  Receipt Date: 20140102
  Transmission Date: 20141002
  Serious: Yes (Hospitalization, Other)
  Sender: FDA-Public Use
  Company Number: IE-JNJFOC-20130316887

PATIENT
  Age: 22 Year
  Sex: Male
  Weight: 57.15 kg

DRUGS (3)
  1. XEPLION [Suspect]
     Indication: AGGRESSION
     Route: 030
     Dates: start: 20120319, end: 20130403
  2. XEPLION [Suspect]
     Indication: PSYCHOTIC DISORDER
     Route: 030
     Dates: start: 20120319, end: 20130403
  3. XEPLION [Suspect]
     Indication: LEARNING DISORDER
     Route: 030
     Dates: start: 20120319, end: 20130403

REACTIONS (3)
  - Extrapyramidal disorder [Recovered/Resolved]
  - Ataxia [Recovered/Resolved]
  - Off label use [Unknown]
